FAERS Safety Report 8853982 (Version 3)
Quarter: 2013Q3

REPORT INFORMATION
  Report Type: Spontaneous
  Country: US (occurrence: US)
  Receive Date: 20121022
  Receipt Date: 20130815
  Transmission Date: 20140515
  Serious: No
  Sender: FDA-Public Use
  Company Number: US-BAYER-2012-107679

PATIENT
  Age: 26 Year
  Sex: Female
  Weight: 99.41 kg

DRUGS (3)
  1. MIRENA [Suspect]
     Indication: CONTRACEPTION
     Dosage: 20 MCG/24HR, CONT
     Route: 015
     Dates: start: 20091015, end: 20120914
  2. NESTABS [VIT C,B9,MIN NOS,RETINOL,VIT E,VIT B NOS,VIT D NOS] [Concomitant]
     Dosage: 32 MG, UNK
     Dates: start: 20121029, end: 20130627
  3. AMPICILINA [Concomitant]
     Dosage: 500 MG, UNK
     Dates: start: 20121029, end: 20121112

REACTIONS (2)
  - Pregnancy with contraceptive device [None]
  - Drug ineffective [None]
